FAERS Safety Report 17557327 (Version 1)
Quarter: 2020Q1

REPORT INFORMATION
  Report Type: Spontaneous
  Country: ID (occurrence: ID)
  Receive Date: 20200318
  Receipt Date: 20200318
  Transmission Date: 20200409
  Serious: Yes (Other)
  Sender: FDA-Public Use
  Company Number: ID-SHIRE-ID202009895

PATIENT

DRUGS (13)
  1. METHYLPREDNISOLONE. [Concomitant]
     Active Substance: METHYLPREDNISOLONE
     Indication: PRODUCT USED FOR UNKNOWN INDICATION
  2. ELAPRASE [Suspect]
     Active Substance: IDURSULFASE
     Indication: MUCOPOLYSACCHARIDOSIS II
     Dosage: 12 MILLIGRAM, 0.5 MG/KG
     Route: 041
     Dates: start: 20200108
  3. ELAPRASE [Suspect]
     Active Substance: IDURSULFASE
     Dosage: 12 MILLIGRAM, 0.5 MG/KG
     Route: 041
     Dates: start: 20200226
  4. ELAPRASE [Suspect]
     Active Substance: IDURSULFASE
     Dosage: 12 MILLIGRAM, 0.5 MG/KG
     Route: 041
     Dates: start: 20200304
  5. ELAPRASE [Suspect]
     Active Substance: IDURSULFASE
     Dosage: 12 MILLIGRAM, 0.5 MG/KG
     Route: 041
     Dates: start: 20200122
  6. ELAPRASE [Suspect]
     Active Substance: IDURSULFASE
     Dosage: 12 MILLIGRAM, 0.5 MG/KG
     Route: 041
     Dates: start: 20200205
  7. PHENYTOIN. [Suspect]
     Active Substance: PHENYTOIN
     Indication: PRODUCT USED FOR UNKNOWN INDICATION
     Route: 065
  8. ELAPRASE [Suspect]
     Active Substance: IDURSULFASE
     Dosage: 12 MILLIGRAM, 0.5 MG/KG
     Route: 041
     Dates: start: 20200115
  9. ELAPRASE [Suspect]
     Active Substance: IDURSULFASE
     Dosage: 12 MILLIGRAM, 0.5 MG/KG
     Route: 041
     Dates: start: 20200129
  10. ELAPRASE [Suspect]
     Active Substance: IDURSULFASE
     Dosage: 12 MILLIGRAM, 0.5 MG/KG
     Route: 041
     Dates: start: 20200212
  11. DEPAKENE [Suspect]
     Active Substance: VALPROIC ACID
     Indication: PRODUCT USED FOR UNKNOWN INDICATION
     Route: 065
  12. CETRIZINE [Concomitant]
     Active Substance: CETIRIZINE HYDROCHLORIDE
     Indication: PRODUCT USED FOR UNKNOWN INDICATION
  13. ELAPRASE [Suspect]
     Active Substance: IDURSULFASE
     Dosage: 12 MILLIGRAM, 0.5 MG/KG
     Route: 041
     Dates: start: 20200219

REACTIONS (1)
  - Thrombocytopenia [Recovering/Resolving]

NARRATIVE: CASE EVENT DATE: 20200126
